FAERS Safety Report 8827489 (Version 1)
Quarter: 2012Q4

REPORT INFORMATION
  Report Type: Report from Study
  Country: CA (occurrence: CA)
  Receive Date: 20121008
  Receipt Date: 20121008
  Transmission Date: 20130627
  Serious: Yes (Other)
  Sender: FDA-Public Use
  Company Number: CA-JNJFOC-20120913197

PATIENT
  Sex: Female
  Weight: 72.9 kg

DRUGS (3)
  1. REMICADE [Suspect]
     Indication: CROHN^S DISEASE
     Route: 042
     Dates: start: 20120618
  2. IMURAN [Concomitant]
     Route: 065
  3. DOXYCYCLINE [Concomitant]
     Route: 065

REACTIONS (3)
  - Skin irritation [Unknown]
  - Acne [Unknown]
  - Cyst [Unknown]
